FAERS Safety Report 8888813 (Version 1)
Quarter: 2012Q4

REPORT INFORMATION
  Report Type: 
  Country: CH (occurrence: CH)
  Receive Date: 20121106
  Receipt Date: 20121106
  Transmission Date: 20130627
  Serious: Yes (Hospitalization)
  Sender: FDA-Public Use
  Company Number: PHHY2012CH100406

PATIENT
  Age: 72 Year
  Sex: Female

DRUGS (6)
  1. LOSARTAN [Suspect]
     Dosage: 50 mg, QD
     Route: 048
     Dates: start: 20120831, end: 20120902
  2. NEXAVAR [Suspect]
     Dosage: 400 mg
     Route: 048
     Dates: start: 20120831, end: 20120911
  3. NORVASC [Suspect]
     Dosage: 5 mg, QD
     Route: 048
     Dates: start: 20120831
  4. BUPRENORPHINE [Suspect]
     Dosage: 1.8 mg
     Route: 048
     Dates: start: 20120831
  5. SODIUM PICOSULFATE [Suspect]
     Dosage: 5 mg, QD
     Route: 048
     Dates: start: 20120831
  6. MOVICOL [Suspect]
     Dosage: 1 DF, UNK
     Dates: start: 20120831

REACTIONS (3)
  - Oedematous pancreatitis [Recovering/Resolving]
  - Abdominal pain [Recovered/Resolved]
  - Vomiting [Recovering/Resolving]
